FAERS Safety Report 17984986 (Version 1)
Quarter: 2020Q3

REPORT INFORMATION
  Report Type: Spontaneous
  Country: US (occurrence: US)
  Receive Date: 20200706
  Receipt Date: 20200706
  Transmission Date: 20201103
  Serious: No
  Sender: FDA-Public Use
  Company Number: US-AVERITAS PHARMA, INC.-2020-102593

PATIENT
  Sex: Female

DRUGS (1)
  1. QUTENZA [Suspect]
     Active Substance: CAPSAICIN
     Indication: POST HERPETIC NEURALGIA
     Dosage: 2 DOSAGE FORM
     Route: 061

REACTIONS (1)
  - Application site pain [Unknown]
